FAERS Safety Report 15676139 (Version 4)
Quarter: 2020Q1

REPORT INFORMATION
  Report Type: Report from Study
  Country: UG (occurrence: UG)
  Receive Date: 20181130
  Receipt Date: 20200116
  Transmission Date: 20200409
  Serious: Yes (Life-Threatening, Other)
  Sender: FDA-Public Use
  Company Number: UG-VIIV HEALTHCARE LIMITED-UG2018GSK210576

PATIENT
  Age: 19 Year
  Sex: Female

DRUGS (22)
  1. LAMIVUDINE + TENOFOVIR DISOPROXIL FUMARATE [Concomitant]
     Active Substance: LAMIVUDINE\TENOFOVIR DISOPROXIL FUMARATE
     Dosage: 600 MG, QD
     Dates: start: 20181221
  2. METRONIDAZOLE. [Concomitant]
     Active Substance: METRONIDAZOLE
     Dosage: 1200 MG, QD
     Dates: start: 20180703, end: 20180710
  3. IMPLANON [Concomitant]
     Active Substance: ETONOGESTREL
     Dosage: 68 MG, QD
     Dates: start: 20180807
  4. FOLIC ACID. [Concomitant]
     Active Substance: FOLIC ACID
     Dosage: 1 DF, QD
     Dates: start: 20180530, end: 201807
  5. CETIRIZINE [Concomitant]
     Active Substance: CETIRIZINE HYDROCHLORIDE
     Dosage: 10 MG, QD
     Dates: start: 20180807, end: 201808
  6. CEFIXIME. [Concomitant]
     Active Substance: CEFIXIME
     Dosage: 400 MG, QD
     Dates: start: 20180606, end: 20180611
  7. AMOXYCILLIN [Concomitant]
     Active Substance: AMOXICILLIN
     Dosage: 1500 MG, QD
     Dates: start: 20180703, end: 20180710
  8. LOPINAVIR [Concomitant]
     Active Substance: LOPINAVIR
  9. DOLUTEGRAVIR [Suspect]
     Active Substance: DOLUTEGRAVIR
     Dosage: 50 MG, QD
     Dates: start: 20181221
  10. ALUVIA [Concomitant]
     Active Substance: LOPINAVIR\RITONAVIR
     Dosage: (1600 MG)
     Dates: start: 20181116, end: 20181221
  11. COTRIMOXAZOLE [Concomitant]
     Active Substance: SULFAMETHOXAZOLE\TRIMETHOPRIM
     Dosage: 960 MG, QD
     Dates: start: 20180530, end: 20181116
  12. PARACETAMOL [Concomitant]
     Active Substance: ACETAMINOPHEN
     Dosage: 3 G, QD
     Dates: start: 20180606, end: 20180610
  13. PARACETAMOL [Concomitant]
     Active Substance: ACETAMINOPHEN
     Dosage: 3 G, QD
     Dates: start: 20180703, end: 20180709
  14. RITONAVIR. [Concomitant]
     Active Substance: RITONAVIR
  15. CEFIXIME. [Concomitant]
     Active Substance: CEFIXIME
     Dosage: 400 MG, QD
     Dates: start: 20180328, end: 20180402
  16. COTRIMOXAZOLE [Concomitant]
     Active Substance: SULFAMETHOXAZOLE\TRIMETHOPRIM
     Dosage: 960 MG, QD
     Dates: start: 20181221
  17. FERROUS SULFATE. [Concomitant]
     Active Substance: FERROUS SULFATE
     Dosage: 1 DF, QD
     Dates: start: 20180530, end: 201807
  18. DOLUTEGRAVIR [Suspect]
     Active Substance: DOLUTEGRAVIR
     Indication: HIV INFECTION
     Dosage: 50 MG, QD
     Route: 048
     Dates: start: 20180530, end: 20181115
  19. LAMIVUDINE + TENOFOVIR DISOPROXIL FUMARATE [Concomitant]
     Active Substance: LAMIVUDINE\TENOFOVIR DISOPROXIL FUMARATE
     Dosage: 600 MG, QD
     Dates: start: 20180530, end: 20181115
  20. LAMIVUDINE + TENOFOVIR DISOPROXIL FUMARATE [Concomitant]
     Active Substance: LAMIVUDINE\TENOFOVIR DISOPROXIL FUMARATE
     Dosage: (1600 MG)
     Dates: start: 20181116, end: 20181219
  21. METRONIDAZOLE. [Concomitant]
     Active Substance: METRONIDAZOLE
     Dosage: 200 MG, QD
     Dates: start: 20190328, end: 20190404
  22. CLOTRIMAZOLE PESSARIES [Concomitant]
     Dosage: 100 MG, QD
     Dates: start: 20191107

REACTIONS (1)
  - Suicide attempt [Not Recovered/Not Resolved]

NARRATIVE: CASE EVENT DATE: 20181115
